FAERS Safety Report 8884041 (Version 1)
Quarter: 2012Q4

REPORT INFORMATION
  Report Type: 
  Country: US (occurrence: US)
  Receive Date: 20121102
  Receipt Date: 20121102
  Transmission Date: 20130627
  Serious: No
  Sender: FDA-Public Use
  Company Number: US-ASTRAZENECA-2012SE27415

PATIENT
  Sex: Female

DRUGS (4)
  1. CRESTOR [Suspect]
     Indication: HYPERCHOLESTEROLAEMIA
     Route: 048
     Dates: start: 201006, end: 20120425
  2. CRESTOR [Suspect]
     Indication: HYPERCHOLESTEROLAEMIA
     Route: 048
     Dates: start: 20120425
  3. OMEGA3 [Concomitant]
  4. DETROL LA [Concomitant]
     Indication: HYPERTONIC BLADDER

REACTIONS (5)
  - Gastrooesophageal reflux disease [Not Recovered/Not Resolved]
  - Glycosylated haemoglobin increased [Not Recovered/Not Resolved]
  - Constipation [Not Recovered/Not Resolved]
  - High density lipoprotein decreased [Not Recovered/Not Resolved]
  - Off label use [Unknown]
